FAERS Safety Report 15601119 (Version 1)
Quarter: 2018Q4

REPORT INFORMATION
  Report Type: Spontaneous
  Country: US (occurrence: US)
  Receive Date: 20181108
  Receipt Date: 20181108
  Transmission Date: 20190205
  Serious: Yes (Death, Other)
  Sender: FDA-Public Use
  Company Number: None

PATIENT
  Age: 77 Year
  Sex: Male
  Weight: 86.89 kg

DRUGS (18)
  1. SIMVASTATIN. [Concomitant]
     Active Substance: SIMVASTATIN
  2. TRIAMCINOLONE [Concomitant]
     Active Substance: TRIAMCINOLONE
  3. BUSPIRONE [Concomitant]
     Active Substance: BUSPIRONE HYDROCHLORIDE
  4. IMODIUM [Concomitant]
     Active Substance: LOPERAMIDE HYDROCHLORIDE
  5. FINASTERIDE. [Concomitant]
     Active Substance: FINASTERIDE
  6. TEMOZOLOMIDE. [Suspect]
     Active Substance: TEMOZOLOMIDE
     Indication: BRAIN NEOPLASM
     Route: 048
     Dates: start: 20180924
  7. CLONAZEPAM. [Concomitant]
     Active Substance: CLONAZEPAM
  8. OMEPRAZOLE. [Concomitant]
     Active Substance: OMEPRAZOLE
  9. PROBIOTICS [Concomitant]
     Active Substance: PROBIOTICS NOS
  10. CHLORPENIRAMINE [Concomitant]
  11. FLONASE [Concomitant]
     Active Substance: FLUTICASONE PROPIONATE
  12. MEDROL [Concomitant]
     Active Substance: METHYLPREDNISOLONE
  13. ONDANSETRON [Concomitant]
     Active Substance: ONDANSETRON
  14. HYDROCORTISONE. [Concomitant]
     Active Substance: HYDROCORTISONE
  15. SYMBICORT [Concomitant]
     Active Substance: BUDESONIDE\FORMOTEROL FUMARATE DIHYDRATE
  16. DILTIAZEM. [Concomitant]
     Active Substance: DILTIAZEM
  17. LORATADINE. [Concomitant]
     Active Substance: LORATADINE
  18. PROAIR HFA [Concomitant]
     Active Substance: ALBUTEROL SULFATE

REACTIONS (1)
  - Disease progression [None]
